FAERS Safety Report 11821913 (Version 1)
Quarter: 2015Q4

REPORT INFORMATION
  Report Type: Spontaneous
  Country: US (occurrence: US)
  Receive Date: 20151210
  Receipt Date: 20151210
  Transmission Date: 20160305
  Serious: No
  Sender: FDA-Public Use
  Company Number: US-JNJFOC-20150800719

PATIENT
  Sex: Male

DRUGS (9)
  1. IMBRUVICA [Suspect]
     Active Substance: IBRUTINIB
     Indication: WALDENSTROM^S MACROGLOBULINAEMIA
     Route: 048
     Dates: start: 201507
  2. ATORVASTATIN [Concomitant]
     Active Substance: ATORVASTATIN
  3. CENTRUM MULTIVITAMINS [Concomitant]
     Active Substance: VITAMINS
  4. METOPROLOL [Concomitant]
     Active Substance: METOPROLOL
  5. IMBRUVICA [Suspect]
     Active Substance: IBRUTINIB
     Indication: WALDENSTROM^S MACROGLOBULINAEMIA
     Route: 048
  6. GABAPENTIN. [Concomitant]
     Active Substance: GABAPENTIN
  7. OMEPRAZOLE. [Concomitant]
     Active Substance: OMEPRAZOLE
  8. VALACYCLOVIR [Concomitant]
     Active Substance: VALACYCLOVIR HYDROCHLORIDE
  9. LISINOPRIL. [Concomitant]
     Active Substance: LISINOPRIL

REACTIONS (7)
  - Epistaxis [Recovered/Resolved]
  - Platelet count decreased [Not Recovered/Not Resolved]
  - Gingival bleeding [Recovering/Resolving]
  - Pharyngeal haemorrhage [Not Recovered/Not Resolved]
  - Haemoglobin decreased [Not Recovered/Not Resolved]
  - Asthenia [Not Recovered/Not Resolved]
  - Off label use [Unknown]

NARRATIVE: CASE EVENT DATE: 2015
